FAERS Safety Report 15833193 (Version 2)
Quarter: 2019Q1

REPORT INFORMATION
  Report Type: Report from Study
  Country: US (occurrence: US)
  Receive Date: 20190116
  Receipt Date: 20190206
  Transmission Date: 20190417
  Serious: Yes (Other)
  Sender: FDA-Public Use
  Company Number: US-SHIRE-US201901321

PATIENT
  Age: 62 Year
  Sex: Male
  Weight: 83.45 kg

DRUGS (2)
  1. OMEPRAZOLE. [Concomitant]
     Active Substance: OMEPRAZOLE
     Indication: GASTROOESOPHAGEAL REFLUX DISEASE
  2. GATTEX [Suspect]
     Active Substance: TEDUGLUTIDE\WATER
     Indication: SHORT-BOWEL SYNDROME
     Dosage: 0.417 MG, 1X/DAY:QD
     Route: 058
     Dates: start: 20181229

REACTIONS (2)
  - Faeces discoloured [Unknown]
  - Haematemesis [Unknown]

NARRATIVE: CASE EVENT DATE: 20190111
